FAERS Safety Report 20679583 (Version 1)
Quarter: 2022Q2

REPORT INFORMATION
  Report Type: Spontaneous
  Country: US (occurrence: None)
  Receive Date: 20220405
  Receipt Date: 20220405
  Transmission Date: 20220721
  Serious: Yes (Other)
  Sender: FDA-Public Use
  Company Number: None

PATIENT
  Age: 43 Year
  Sex: Male
  Weight: 123.3 kg

DRUGS (1)
  1. BEBTELOVIMAB [Suspect]
     Active Substance: BEBTELOVIMAB
     Indication: COVID-19
     Dosage: OTHER FREQUENCY : ONCE;?
     Route: 042
     Dates: start: 20220401, end: 20220401

REACTIONS (6)
  - Hypotension [None]
  - Infusion related reaction [None]
  - Dizziness [None]
  - Hyperhidrosis [None]
  - Pallor [None]
  - Presyncope [None]

NARRATIVE: CASE EVENT DATE: 20220401
